FAERS Safety Report 21416419 (Version 2)
Quarter: 2022Q4

REPORT INFORMATION
  Report Type: Spontaneous
  Country: US (occurrence: None)
  Receive Date: 20221006
  Receipt Date: 20221123
  Transmission Date: 20230112
  Serious: Yes (Other)
  Sender: FDA-Public Use
  Company Number: 2022A336034

PATIENT
  Age: 26572 Day
  Sex: Female
  Weight: 56.2 kg

DRUGS (2)
  1. EVUSHELD [Suspect]
     Active Substance: CILGAVIMAB\TIXAGEVIMAB
     Indication: Vasculitis
     Dosage: 2 INJECTIONS
     Route: 030
     Dates: start: 202203
  2. EVUSHELD [Suspect]
     Active Substance: CILGAVIMAB\TIXAGEVIMAB
     Indication: Vasculitis
     Dosage: 2 INJECTIONS
     Route: 030
     Dates: start: 20220927

REACTIONS (1)
  - Carbohydrate antigen 125 increased [Unknown]

NARRATIVE: CASE EVENT DATE: 20220928
